FAERS Safety Report 5897686-1 (Version None)
Quarter: 2008Q3

REPORT INFORMATION
  Report Type: 
  Country: None (occurrence: None)
  Receive Date: 20080923
  Receipt Date: 20080908
  Transmission Date: 20090109
  Serious: Yes (Life-Threatening, Hospitalization)
  Sender: FDA-Public Use
  Company Number: 2008002329

PATIENT
  Age: 72 Year
  Sex: Male

DRUGS (3)
  1. ERLOTINIB (ERLOTINIB) [Suspect]
     Indication: NON-SMALL CELL LUNG CANCER
     Dosage: (150 MG,QD), ORAL
     Route: 048
     Dates: start: 20051208
  2. TOUXIUM (DEXTROMETHORPHAN) [Concomitant]
  3. PANTOPRAZOLE SODIUM [Concomitant]

REACTIONS (3)
  - DEEP VEIN THROMBOSIS [None]
  - HYPOXIA [None]
  - PULMONARY EMBOLISM [None]
